FAERS Safety Report 9026502 (Version 1)
Quarter: 2012Q4

REPORT INFORMATION
  Report Type: Spontaneous
  Country: IT (occurrence: None)
  Receive Date: 20121211
  Receipt Date: 20121211
  Transmission Date: 20130627
  Serious: Yes (Death)
  Sender: FDA-Public Use
  Company Number: DSA_61163_2012

PATIENT

DRUGS (5)
  1. FLUOROURACIL (FLUOROURACIL) [Suspect]
     Indication: COLORECTAL CANCER METASTATIC
     Dosage: (100 mg/m2 Every other week Intravenous bolus), (600 mg/m2; Every other week Intravenous (not otherwise specified))
(Unknown),  (Unknown)
  2. FLUOROURACIL (FLUOROURACIL) [Suspect]
     Indication: COLORECTAL CANCER METASTATIC
     Route: 042
  3. IRINOTECAN (IRINOTECAN) [Suspect]
     Indication: COLORECTAL CANCER METASTATIC
     Dosage: (180 mg/m2 Every other week)
(Unknown)
  4. LEUCOVORIN /00566701/ [Suspect]
     Indication: COLORECTAL CANCER METASTATIC
     Dosage: (100 mg/m2  Every other week Intravenous (not otherwise specified))
(Unknown)
     Route: 042
  5. BEVACIZUMAB [Suspect]
     Indication: COLORECTAL CANCER METASTATIC
     Dosage: (5 mg/kg; Every other week)
(Unknown)

REACTIONS (1)
  - Death [None]
